FAERS Safety Report 18852639 (Version 1)
Quarter: 2021Q1

REPORT INFORMATION
  Report Type: Report from Study
  Country: GB (occurrence: GB)
  Receive Date: 20210205
  Receipt Date: 20210205
  Transmission Date: 20210420
  Serious: Yes (Other)
  Sender: FDA-Public Use
  Company Number: GB-BAYER-2021-043066

PATIENT
  Age: 78 Year
  Sex: Male

DRUGS (1)
  1. KOGENATE [Suspect]
     Active Substance: ANTIHEMOPHILIC FACTOR, HUMAN RECOMBINANT
     Indication: FACTOR VIII DEFICIENCY

REACTIONS (1)
  - Thrombotic stroke [None]
